FAERS Safety Report 13462000 (Version 1)
Quarter: 2017Q2

REPORT INFORMATION
  Report Type: Spontaneous
  Country: US (occurrence: US)
  Receive Date: 20170420
  Receipt Date: 20170420
  Transmission Date: 20170830
  Serious: Yes (Death)
  Sender: FDA-Public Use
  Company Number: None

PATIENT
  Age: 8 Year
  Sex: Female

DRUGS (9)
  1. HYOSCYAMINE. [Concomitant]
     Active Substance: HYOSCYAMINE
  2. NYSTATIN. [Concomitant]
     Active Substance: NYSTATIN
  3. CAYSTON [Concomitant]
     Active Substance: AZTREONAM
  4. TOBRAMYCIN 300MG/5ML [Suspect]
     Active Substance: TOBRAMYCIN
     Indication: CYSTIC FIBROSIS
     Route: 055
     Dates: start: 20130115, end: 201704
  5. FLUCONAZOLE. [Concomitant]
     Active Substance: FLUCONAZOLE
  6. CLONIDINE. [Concomitant]
     Active Substance: CLONIDINE
  7. PULMOZYME [Concomitant]
     Active Substance: DORNASE ALFA
  8. NYSTOP [Concomitant]
     Active Substance: NYSTATIN
  9. DESONIDE. [Concomitant]
     Active Substance: DESONIDE

REACTIONS (1)
  - Death [None]

NARRATIVE: CASE EVENT DATE: 201704
